FAERS Safety Report 10545338 (Version 2)
Quarter: 2014Q4

REPORT INFORMATION
  Report Type: Spontaneous
  Country: US (occurrence: US)
  Receive Date: 20141027
  Receipt Date: 20141103
  Transmission Date: 20150529
  Serious: Yes (Hospitalization)
  Sender: FDA-Public Use
  Company Number: US-JNJFOC-20141014836

PATIENT
  Age: 69 Year
  Sex: Male

DRUGS (8)
  1. EXTRACT GINGKO BILOBA [Concomitant]
  2. CYMBALTA [Concomitant]
     Active Substance: DULOXETINE HYDROCHLORIDE
  3. DULCOLAX [Concomitant]
     Active Substance: BISACODYL OR DOCUSATE SODIUM
  4. PANTOPRAZOLE [Concomitant]
     Active Substance: PANTOPRAZOLE SODIUM
  5. VITAMIN B12 [Concomitant]
     Active Substance: CYANOCOBALAMIN
  6. ISOSORBIDE MONONITRATE. [Concomitant]
     Active Substance: ISOSORBIDE MONONITRATE
  7. FAMOTIDINE. [Concomitant]
     Active Substance: FAMOTIDINE
  8. IMBRUVICA [Suspect]
     Active Substance: IBRUTINIB
     Indication: MANTLE CELL LYMPHOMA
     Route: 065
     Dates: start: 20141007

REACTIONS (7)
  - Chest pain [Unknown]
  - Platelet count decreased [Unknown]
  - Pyrexia [Unknown]
  - Haemoglobin decreased [Unknown]
  - Dizziness postural [Unknown]
  - Dysuria [Unknown]
  - Oesophageal haemorrhage [Recovered/Resolved]

NARRATIVE: CASE EVENT DATE: 201410
